FAERS Safety Report 4333475-7 (Version None)
Quarter: 2004Q2

REPORT INFORMATION
  Report Type: 
  Country: None (occurrence: None)
  Receive Date: 20040401
  Receipt Date: 20040319
  Transmission Date: 20050107
  Serious: Yes (Other)
  Sender: FDA-Public Use
  Company Number: CHPA2004US01616

PATIENT
  Sex: 0

DRUGS (1)
  1. TRANSDERM SCOP [Suspect]
     Dosage: TRANSDERMAL
     Route: 062

REACTIONS (1)
  - ILEUS PARALYTIC [None]
